FAERS Safety Report 8299165-3 (Version None)
Quarter: 2012Q2

REPORT INFORMATION
  Report Type: 
  Country: None (occurrence: None)
  Receive Date: 20120419
  Receipt Date: 20120409
  Transmission Date: 20120825
  Serious: Yes (Death)
  Sender: FDA-Public Use
  Company Number: US-ACTELION-A-NJ2011-57575

PATIENT

DRUGS (4)
  1. TRACLEER [Suspect]
     Indication: PULMONARY ARTERIAL HYPERTENSION
     Dosage: UNK
     Route: 048
     Dates: start: 20110225, end: 20120401
  2. COUMADIN [Concomitant]
  3. FUROSEMIDE [Concomitant]
  4. SPIRONOLACTONE [Concomitant]

REACTIONS (7)
  - DEMENTIA [None]
  - SYNCOPE [None]
  - DYSPNOEA [None]
  - FATIGUE [None]
  - DEATH [None]
  - CONCOMITANT DISEASE AGGRAVATED [None]
  - INCONTINENCE [None]
